FAERS Safety Report 9957824 (Version 1)
Quarter: 2014Q1

REPORT INFORMATION
  Report Type: Report from Study
  Country: US (occurrence: US)
  Receive Date: 20140304
  Receipt Date: 20140304
  Transmission Date: 20141002
  Serious: No
  Sender: FDA-Public Use
  Company Number: US-ABBVIE-13P-163-1092584-00

PATIENT
  Age: 82 Year
  Sex: Male

DRUGS (14)
  1. HUMIRA [Suspect]
     Indication: PSORIASIS
     Dates: start: 20130326
  2. HUMIRA [Suspect]
  3. GABAPENTIN [Concomitant]
     Indication: PAIN
  4. DEPLIN [Concomitant]
     Indication: DEPRESSION
  5. DONEPEZIL HCL [Concomitant]
     Indication: DEMENTIA
  6. NAMENDA [Concomitant]
     Indication: DEMENTIA
  7. NARDIL [Concomitant]
     Indication: DEPRESSION
  8. NEXIUM [Concomitant]
     Indication: GASTRIC DISORDER
  9. METHOTREXATE [Concomitant]
     Indication: PRODUCT USED FOR UNKNOWN INDICATION
     Dosage: 7 PILLS Q WEEK
  10. FOSINOPRIL [Concomitant]
     Indication: BLOOD PRESSURE
  11. CALTRATE [Concomitant]
     Indication: MINERAL SUPPLEMENTATION
  12. VESICARE [Concomitant]
     Indication: POLLAKIURIA
  13. BACLOFEN [Concomitant]
     Indication: PAIN
  14. ALEVE [Concomitant]
     Indication: PRODUCT USED FOR UNKNOWN INDICATION
     Dosage: 2 A DAY IF NEEDED

REACTIONS (2)
  - Hallucination [Unknown]
  - Back pain [Not Recovered/Not Resolved]
